FAERS Safety Report 5749320-9 (Version None)
Quarter: 2008Q2

REPORT INFORMATION
  Report Type: 
  Country: None (occurrence: None)
  Receive Date: 20080527
  Receipt Date: 20080522
  Transmission Date: 20081010
  Serious: Yes (Death, Other)
  Sender: FDA-Public Use
  Company Number: IT-AVENTIS-200812342EU

PATIENT
  Age: 79 Year
  Sex: Male

DRUGS (7)
  1. CLEXANE [Suspect]
     Route: 058
     Dates: start: 20080507, end: 20080521
  2. TRIATEC                            /00885601/ [Concomitant]
     Route: 048
  3. DELTACORTENE [Concomitant]
     Route: 048
  4. MEPRAL                             /00661201/ [Concomitant]
     Route: 048
  5. LOPRESOR                           /00376902/ [Concomitant]
     Route: 048
  6. AUGMENTIN '125' [Concomitant]
     Route: 048
  7. FLUIMICIL [Concomitant]
     Route: 048

REACTIONS (2)
  - DEATH [None]
  - MOUTH HAEMORRHAGE [None]
